FAERS Safety Report 7072242-0 (Version None)
Quarter: 2010Q4

REPORT INFORMATION
  Report Type: 
  Country: None (occurrence: None)
  Receive Date: 20101029
  Receipt Date: 20101021
  Transmission Date: 20110411
  Serious: Yes (Other)
  Sender: FDA-Public Use
  Company Number: US-SANOFI-AVENTIS-2010SA064602

PATIENT
  Age: 66 Year
  Sex: Female

DRUGS (4)
  1. LANTUS [Suspect]
     Dosage: DOSE:55 UNIT(S)
     Route: 058
  2. LANTUS [Suspect]
     Dosage: DOSE:45 UNIT(S)
     Route: 058
  3. SOLOSTAR [Suspect]
     Route: 058
  4. NOVOLOG [Concomitant]
     Dosage: DOSE:55 UNIT(S)

REACTIONS (2)
  - BLOOD GLUCOSE DECREASED [None]
  - CARPAL TUNNEL SYNDROME [None]
